FAERS Safety Report 7867898-6 (Version None)
Quarter: 2011Q4

REPORT INFORMATION
  Report Type: 
  Country: None (occurrence: None)
  Receive Date: 20111028
  Receipt Date: 20111020
  Transmission Date: 20120403
  Serious: Yes (Hospitalization)
  Sender: FDA-Public Use
  Company Number: US-MPIJNJ-2011-05065

PATIENT

DRUGS (4)
  1. VELCADE [Suspect]
     Indication: PRODUCT USED FOR UNKNOWN INDICATION
     Dosage: 1.6 MG/M2, CYCLIC
     Dates: start: 20111014, end: 20111014
  2. PROCHLORPERAZINE [Concomitant]
     Indication: PREMEDICATION
     Dosage: 10 MG, Q6HR
     Route: 048
  3. ROMIDEPSIN [Suspect]
     Indication: PRODUCT USED FOR UNKNOWN INDICATION
     Dosage: 8 MG/M2, CYCLIC
     Dates: start: 20111014, end: 20111014
  4. DEXAMETHASONE [Concomitant]
     Indication: PREMEDICATION
     Dosage: 8 MG, UNK
     Route: 048

REACTIONS (12)
  - VOMITING [None]
  - CONJUNCTIVITIS [None]
  - CHILLS [None]
  - PHOTOPHOBIA [None]
  - RASH MACULAR [None]
  - DIARRHOEA [None]
  - CYTOKINE RELEASE SYNDROME [None]
  - NAUSEA [None]
  - PERIORBITAL OEDEMA [None]
  - HYPERHIDROSIS [None]
  - ORAL DYSAESTHESIA [None]
  - HYPOTENSION [None]
